FAERS Safety Report 7051126-8 (Version None)
Quarter: 2010Q4

REPORT INFORMATION
  Report Type: 
  Country: None (occurrence: None)
  Receive Date: 20101019
  Receipt Date: 20101011
  Transmission Date: 20110411
  Serious: Yes (Death)
  Sender: FDA-Public Use
  Company Number: KR-GENZYME-CLOF-1001258

PATIENT
  Sex: Male
  Weight: 29.7 kg

DRUGS (5)
  1. EVOLTRA [Suspect]
     Indication: ACUTE LYMPHOCYTIC LEUKAEMIA
     Dosage: 40 MG/M2, QDX5
     Route: 042
     Dates: start: 20100817, end: 20100821
  2. CYTARABINE [Suspect]
     Indication: ACUTE LYMPHOCYTIC LEUKAEMIA
     Dosage: 1 G/M2, QD
     Route: 042
     Dates: start: 20100817, end: 20100826
  3. TEICOPLANIN [Concomitant]
     Indication: PYREXIA
     Dosage: 6 MG/KG, QD
     Dates: start: 20100805, end: 20101011
  4. MEROPENEM [Concomitant]
     Indication: PYREXIA
     Dosage: 20 MG/KG, TID
     Dates: start: 20100805, end: 20101011
  5. AMPHOTERICIN B [Concomitant]
     Indication: PYREXIA
     Dosage: 1 G, QD
     Dates: start: 20100821, end: 20101011

REACTIONS (1)
  - ACUTE LYMPHOCYTIC LEUKAEMIA [None]
